FAERS Safety Report 9504809 (Version 1)
Quarter: 2013Q3

REPORT INFORMATION
  Report Type: Spontaneous
  Country: US (occurrence: US)
  Receive Date: 20130906
  Receipt Date: 20130906
  Transmission Date: 20140515
  Serious: No
  Sender: FDA-Public Use
  Company Number: US-009507513-1308USA008816

PATIENT
  Age: 24 Year
  Sex: Female
  Weight: 143.31 kg

DRUGS (9)
  1. VICTRELIS [Suspect]
     Dosage: TAKE 4 CAPSULES BY MOUTH THREE TIMES A DAY WITH FOOD.
     Route: 048
  2. VICTRELIS [Suspect]
     Dosage: UNK
  3. PEGASYS [Suspect]
  4. REBETOL [Suspect]
     Route: 048
  5. COGENTIN [Concomitant]
     Dosage: 1 MG/ML
  6. NEURONTIN [Concomitant]
  7. CELEXA [Concomitant]
  8. BENICAR [Concomitant]
  9. SAPHRIS [Concomitant]
     Route: 060

REACTIONS (5)
  - Oropharyngeal discomfort [Unknown]
  - Dysphagia [Unknown]
  - Dysgeusia [Unknown]
  - Pharyngeal oedema [Unknown]
  - Wrong technique in drug usage process [Unknown]
